FAERS Safety Report 8204685-3 (Version None)
Quarter: 2012Q1

REPORT INFORMATION
  Report Type: 
  Country: None (occurrence: None)
  Receive Date: 20120313
  Receipt Date: 20120229
  Transmission Date: 20120608
  Serious: Yes (Other)
  Sender: FDA-Public Use
  Company Number: GB-ALLERGAN-1202838US

PATIENT
  Age: 81 Year
  Sex: Male

DRUGS (2)
  1. TABLET FOR DIABETES [Concomitant]
     Indication: DIABETES MELLITUS
  2. OZURDEX [Suspect]
     Indication: MACULAR OEDEMA
     Dosage: 0.7 MG, SINGLE
     Route: 031
     Dates: start: 20120102, end: 20120102

REACTIONS (3)
  - IRIDOCYCLITIS [None]
  - RETINAL DISORDER [None]
  - VISUAL ACUITY REDUCED [None]
